FAERS Safety Report 7755823-8 (Version None)
Quarter: 2011Q3

REPORT INFORMATION
  Report Type: 
  Country: None (occurrence: None)
  Receive Date: 20110914
  Receipt Date: 20110831
  Transmission Date: 20111222
  Serious: Yes (Other)
  Sender: FDA-Public Use
  Company Number: AUR-APL-2011-04633

PATIENT
  Age: 45 Year
  Sex: Female

DRUGS (1)
  1. CIPROFLOXACIN [Suspect]
     Indication: DIVERTICULITIS

REACTIONS (7)
  - HYPERSENSITIVITY [None]
  - BLOOD BILIRUBIN INCREASED [None]
  - MIXED LIVER INJURY [None]
  - ASPARTATE AMINOTRANSFERASE INCREASED [None]
  - ALANINE AMINOTRANSFERASE INCREASED [None]
  - STEVENS-JOHNSON SYNDROME [None]
  - BLOOD ALKALINE PHOSPHATASE INCREASED [None]
